FAERS Safety Report 16461196 (Version 1)
Quarter: 2019Q2

REPORT INFORMATION
  Report Type: Spontaneous
  Country: IT (occurrence: IT)
  Receive Date: 20190620
  Receipt Date: 20190620
  Transmission Date: 20190711
  Serious: Yes (Hospitalization, Other)
  Sender: FDA-Public Use
  Company Number: IT-EX USA HOLDINGS-EXHL20192291

PATIENT
  Age: 33 Year
  Sex: Male

DRUGS (2)
  1. SODIUM ALGINATE [Concomitant]
     Active Substance: SODIUM ALGINATE
     Indication: HIATUS HERNIA
     Dosage: UNKNOWN
     Route: 065
     Dates: start: 201707
  2. LANSOPRAZOLE. [Suspect]
     Active Substance: LANSOPRAZOLE
     Indication: HIATUS HERNIA
     Dosage: 30 MG
     Route: 065
     Dates: start: 201707

REACTIONS (7)
  - Hypokalaemia [Recovered/Resolved]
  - Nocturia [Recovered/Resolved]
  - Hypomagnesaemia [Recovered/Resolved]
  - Weight decreased [Recovered/Resolved]
  - Asthenia [Recovered/Resolved]
  - Gitelman^s syndrome [Recovered/Resolved]
  - Diarrhoea [Recovered/Resolved]

NARRATIVE: CASE EVENT DATE: 2017
